FAERS Safety Report 18189610 (Version 1)
Quarter: 2020Q3

REPORT INFORMATION
  Report Type: Spontaneous
  Country: US (occurrence: US)
  Receive Date: 20200825
  Receipt Date: 20200825
  Transmission Date: 20201103
  Serious: No
  Sender: FDA-Public Use
  Company Number: US-SA-2020SA224365

PATIENT

DRUGS (7)
  1. JARDIANCE [Concomitant]
     Active Substance: EMPAGLIFLOZIN
  2. ATORSTAT [Concomitant]
     Active Substance: ATORVASTATIN CALCIUM
  3. ASPIRIN [ACETYLSALICYLIC ACID] [Concomitant]
     Active Substance: ASPIRIN
     Dosage: UNK UNK, QD, IN THE MORNING
  4. PLAVIX [Suspect]
     Active Substance: CLOPIDOGREL BISULFATE
     Indication: MYOCARDIAL INFARCTION
     Dosage: UNK
     Route: 065
     Dates: start: 20131126
  5. METFORMIN [Concomitant]
     Active Substance: METFORMIN HYDROCHLORIDE
  6. CARVEDILOL. [Concomitant]
     Active Substance: CARVEDILOL
  7. LISINOPRIL. [Concomitant]
     Active Substance: LISINOPRIL

REACTIONS (7)
  - Fall [Unknown]
  - Haemoglobin decreased [Unknown]
  - Blood urine present [Unknown]
  - Urinary tract obstruction [Unknown]
  - Haemorrhage urinary tract [Unknown]
  - Anaemia [Unknown]
  - Haemorrhage [Unknown]

NARRATIVE: CASE EVENT DATE: 2016
